FAERS Safety Report 4313282-1 (Version None)
Quarter: 2004Q1

REPORT INFORMATION
  Report Type: 
  Country: None (occurrence: None)
  Receive Date: 20040304
  Receipt Date: 20040223
  Transmission Date: 20041129
  Serious: Yes (Death, Hospitalization)
  Sender: FDA-Public Use
  Company Number: 200410725FR

PATIENT
  Age: 73 Year
  Sex: Female

DRUGS (12)
  1. SUCRALFATE [Suspect]
     Indication: DUODENAL ULCER HAEMORRHAGE
     Dosage: PO
     Route: 048
     Dates: start: 20040203, end: 20040208
  2. FLAGYL [Suspect]
     Indication: CLOSTRIDIUM COLITIS
     Dates: start: 20040205
  3. HEPARIN-FRACTION, CALCIUM SALT (FAXIPARINE) [Suspect]
     Indication: POST PROCEDURAL COMPLICATION
     Dosage: SC
     Route: 058
     Dates: start: 20040109, end: 20040204
  4. HEPARIN-FRACTION, CALCIUM SALT (FAXIPARINE) [Suspect]
     Indication: PROPHYLAXIS
     Dosage: SC
     Route: 058
     Dates: start: 20040109, end: 20040204
  5. OMEPRAZOLE [Suspect]
     Dosage: 40 MG QD IV
     Route: 042
     Dates: start: 20040203, end: 20040205
  6. OMEPRAZOLE [Suspect]
     Dosage: 20 MG QD PO
     Route: 048
     Dates: start: 20040205, end: 20040208
  7. DOMERIDONE [Concomitant]
  8. METOPROLOL TARTRATE (LOPRESSOR) [Concomitant]
  9. HYDROCHLOROTHIAZIDE, AMILORIDE HYDROCHLORIDE (MODURETIC ^MSD^) [Concomitant]
  10. ACETAMINOPHEN [Concomitant]
  11. AMOXICILLIN TRIHYDRATE [Concomitant]
  12. CLARITHROMYCIN (ZECLAR) [Concomitant]

REACTIONS (6)
  - CERVIX NEOPLASM [None]
  - CLOSTRIDIUM COLITIS [None]
  - DUODENAL ULCER HAEMORRHAGE [None]
  - NAUSEA [None]
  - NEOPLASM RECURRENCE [None]
  - THROMBOCYTOPENIA [None]
